FAERS Safety Report 9515755 (Version 2)
Quarter: 2014Q1

REPORT INFORMATION
  Report Type: Spontaneous
  Country: US (occurrence: None)
  Receive Date: 20130305
  Receipt Date: 20140306
  Transmission Date: 20141002
  Serious: Yes (Other)
  Sender: FDA-Public Use
  Company Number: 163-21880-12112492

PATIENT
  Age: 64 Year
  Sex: Male

DRUGS (3)
  1. REVLIMID [Suspect]
     Indication: PLASMA CELL MYELOMA
     Route: 048
     Dates: start: 201002
  2. AUGMENTIN [Concomitant]
  3. LASIX (FUROSEMIDE) [Concomitant]

REACTIONS (3)
  - Platelet count decreased [None]
  - Thrombocytopenia [None]
  - Full blood count decreased [None]
